FAERS Safety Report 9059019 (Version 1)
Quarter: 2013Q1

REPORT INFORMATION
  Report Type: Spontaneous
  Country: US (occurrence: US)
  Receive Date: 20130211
  Receipt Date: 20130211
  Transmission Date: 20140127
  Serious: No
  Sender: FDA-Public Use
  Company Number: US-BRISTOL-MYERS SQUIBB COMPANY-16539561

PATIENT
  Age: 80 Year
  Sex: Male

DRUGS (12)
  1. GLUCOPHAGE [Suspect]
  2. ZOCOR [Suspect]
  3. ZYLOPRIM [Concomitant]
     Dosage: QTY:30 TABLET
     Route: 048
     Dates: start: 20111216
  4. NORVASC [Concomitant]
     Indication: BLOOD PRESSURE
     Route: 048
     Dates: start: 20111216
  5. LIPITOR [Concomitant]
     Dosage: TABLET
     Route: 048
     Dates: start: 20111216
  6. VITAMIN B12 [Concomitant]
     Route: 048
  7. BUMEX [Concomitant]
     Dosage: 1/4 OF 1 MG TAB
     Route: 048
     Dates: start: 20111216
  8. VITAMIN D [Concomitant]
     Dosage: 1 CAPSULE
     Route: 048
     Dates: start: 20120323, end: 20120323
  9. NOVOLOG [Concomitant]
     Indication: DIABETES MELLITUS
     Route: 058
     Dates: start: 20111216
  10. INSULIN [Concomitant]
     Dosage: INJECTION, SYRINGE
     Route: 058
     Dates: start: 20120323
  11. PRINIVIL [Concomitant]
     Dosage: 20 MG TABLET
     Dates: start: 20111216
  12. ZESTRIL [Concomitant]
     Dosage: 1DF- 0.5 TAB EVRY AM;
     Route: 048
     Dates: start: 20111216

REACTIONS (1)
  - Hypersensitivity [Unknown]
